FAERS Safety Report 5767362-4 (Version None)
Quarter: 2008Q2

REPORT INFORMATION
  Report Type: 
  Country: None (occurrence: None)
  Receive Date: 20080612
  Receipt Date: 20080605
  Transmission Date: 20081010
  Serious: Yes (Other)
  Sender: FDA-Public Use
  Company Number: A0732526A

PATIENT
  Sex: Female

DRUGS (3)
  1. LAMOTRIGINE [Suspect]
     Indication: EPILEPSY
     Route: 048
  2. CLONAZEPAM [Concomitant]
  3. TOPIRAMATE [Concomitant]
     Dosage: 200MG PER DAY

REACTIONS (2)
  - ABORTION INDUCED [None]
  - DRUG EXPOSURE DURING PREGNANCY [None]
